FAERS Safety Report 5509994-4 (Version None)
Quarter: 2007Q4

REPORT INFORMATION
  Report Type: 
  Country: None (occurrence: None)
  Receive Date: 20071107
  Receipt Date: 20071107
  Transmission Date: 20080405
  Serious: Yes (Other)
  Sender: FDA-Public Use
  Company Number: None

PATIENT
  Sex: Female
  Weight: 79 kg

DRUGS (1)
  1. THALIDOMIDE [Suspect]
     Indication: MULTIPLE MYELOMA
     Dosage: 100MG DAILY PO
     Route: 048
     Dates: start: 20070620, end: 20070918

REACTIONS (5)
  - BIOPSY KIDNEY ABNORMAL [None]
  - DRUG HYPERSENSITIVITY [None]
  - GLOMERULONEPHRITIS PROLIFERATIVE [None]
  - NEPHRITIS INTERSTITIAL [None]
  - TUBULOINTERSTITIAL NEPHRITIS [None]
